FAERS Safety Report 7194479-2 (Version None)
Quarter: 2010Q4

REPORT INFORMATION
  Report Type: 
  Country: None (occurrence: None)
  Receive Date: 20101223
  Receipt Date: 20101214
  Transmission Date: 20110411
  Serious: Yes (Death, Hospitalization)
  Sender: FDA-Public Use
  Company Number: US-ACTELION-A-US2010-34804

PATIENT

DRUGS (2)
  1. BOSENTAN TABLET 125 MG US [Suspect]
     Indication: RAYNAUD'S PHENOMENON
     Dosage: 62.5 MG, BID
     Route: 048
     Dates: start: 20060101
  2. BOSENTAN TABLET 125 MG US [Suspect]
     Dosage: 125 MG, BID
     Route: 048
     Dates: start: 20060101, end: 20100101

REACTIONS (8)
  - ABDOMINAL PAIN [None]
  - ACUTE ABDOMEN [None]
  - DEATH [None]
  - GANGRENE [None]
  - HYPOTENSION [None]
  - PERIPHERAL VASCULAR DISORDER [None]
  - RENAL FAILURE [None]
  - SHOCK [None]
